FAERS Safety Report 4847218-1 (Version None)
Quarter: 2005Q4

REPORT INFORMATION
  Report Type: 
  Country: None (occurrence: None)
  Receive Date: 20051207
  Receipt Date: 20050811
  Transmission Date: 20060501
  Serious: Yes (Hospitalization, Other)
  Sender: FDA-Public Use
  Company Number: US-GLAXOSMITHKLINE-A0569837A

PATIENT
  Age: 42 Year
  Sex: Female
  Weight: 47.7 kg

DRUGS (4)
  1. EPZICOM [Suspect]
     Indication: HIV INFECTION
     Dosage: 1TAB PER DAY
     Route: 048
     Dates: start: 20050628, end: 20050808
  2. TRIZIVIR [Suspect]
     Indication: HIV INFECTION
     Dates: start: 20010101, end: 20050601
  3. VIRAMUNE [Suspect]
     Indication: HIV INFECTION
     Route: 048
     Dates: start: 20050628, end: 20050808
  4. OMEPRAZOLE [Concomitant]

REACTIONS (32)
  - ADVERSE DRUG REACTION [None]
  - BLOOD HIV RNA INCREASED [None]
  - CD4 LYMPHOCYTES DECREASED [None]
  - CHEILITIS [None]
  - CHILLS [None]
  - CONJUNCTIVAL HYPERAEMIA [None]
  - DERMATITIS BULLOUS [None]
  - DYSPHAGIA [None]
  - ERYTHEMA MULTIFORME [None]
  - EYE IRRITATION [None]
  - HYPERSENSITIVITY [None]
  - LABORATORY TEST ABNORMAL [None]
  - LIP EXFOLIATION [None]
  - NASOPHARYNGITIS [None]
  - OCULAR HYPERAEMIA [None]
  - ODYNOPHAGIA [None]
  - OESOPHAGEAL CANDIDIASIS [None]
  - ORAL PAIN [None]
  - PHARYNGEAL CANDIDIASIS [None]
  - PURPURA [None]
  - PYREXIA [None]
  - RASH [None]
  - RASH MACULO-PAPULAR [None]
  - SCLERAL OEDEMA [None]
  - SKIN EXFOLIATION [None]
  - SKIN HYPERPIGMENTATION [None]
  - STEVENS-JOHNSON SYNDROME [None]
  - STOMATITIS [None]
  - SWELLING FACE [None]
  - TACHYCARDIA [None]
  - TONGUE EXFOLIATION [None]
  - WEIGHT DECREASED [None]
